FAERS Safety Report 9859479 (Version 1)
Quarter: 2014Q1

REPORT INFORMATION
  Report Type: Spontaneous
  Country: US (occurrence: US)
  Receive Date: 20140131
  Receipt Date: 20140131
  Transmission Date: 20141002
  Serious: Yes (Other)
  Sender: FDA-Public Use
  Company Number: US-ACTAVIS-2014-01247

PATIENT
  Age: 48 Year
  Sex: Female
  Weight: 73 kg

DRUGS (2)
  1. KADIAN (WATSON LABORATORIES) [Suspect]
     Indication: PAIN MANAGEMENT
     Dosage: 1 DF, BID
     Route: 048
     Dates: start: 2007
  2. OXYCODONE / ACETAMINOPHEN [Suspect]
     Indication: PAIN MANAGEMENT
     Dosage: 1 DF, TID
     Route: 065
     Dates: start: 2007

REACTIONS (7)
  - Hallucination, auditory [Not Recovered/Not Resolved]
  - Drug ineffective [Not Recovered/Not Resolved]
  - Aggression [Not Recovered/Not Resolved]
  - Feeling abnormal [Not Recovered/Not Resolved]
  - Lethargy [Not Recovered/Not Resolved]
  - Anger [Not Recovered/Not Resolved]
  - Violence-related symptom [Not Recovered/Not Resolved]
